FAERS Safety Report 10225544 (Version 2)
Quarter: 2014Q2

REPORT INFORMATION
  Report Type: Spontaneous
  Country: US (occurrence: US)
  Receive Date: 20140609
  Receipt Date: 20140609
  Transmission Date: 20141212
  Serious: Yes (Other)
  Sender: FDA-Public Use
  Company Number: US-ASTELLAS-2013US013435

PATIENT
  Sex: Male

DRUGS (4)
  1. PROGRAF [Suspect]
     Indication: RENAL TRANSPLANT
     Route: 048
     Dates: start: 201301
  2. PROGRAF [Suspect]
     Indication: PANCREAS TRANSPLANT
  3. TACROLIMUS [Suspect]
     Indication: RENAL TRANSPLANT
     Route: 048
  4. TACROLIMUS [Suspect]
     Indication: PANCREAS TRANSPLANT

REACTIONS (3)
  - Off label use [Unknown]
  - Drug dispensing error [Unknown]
  - Immunosuppressant drug level decreased [Unknown]
